FAERS Safety Report 12576203 (Version 5)
Quarter: 2018Q1

REPORT INFORMATION
  Report Type: Report from Study
  Country: FR (occurrence: FR)
  Receive Date: 20160720
  Receipt Date: 20180125
  Transmission Date: 20180508
  Serious: Yes (Life-Threatening, Hospitalization)
  Sender: FDA-Public Use
  Company Number: FR-JNJFOC-20160715387

PATIENT
  Age: 22 Year
  Sex: Male
  Weight: 50 kg

DRUGS (4)
  1. RISPERDAL [Concomitant]
     Active Substance: RISPERIDONE
     Route: 065
  2. RISPERDAL CONSTA [Suspect]
     Active Substance: RISPERIDONE
     Indication: SCHIZOPHRENIA
     Dosage: DOSE: 2 X 50 MG
     Route: 065
     Dates: start: 20160629, end: 20160629
  3. BACLOFEN. [Concomitant]
     Active Substance: BACLOFEN
     Route: 065
  4. RISPERDAL CONSTA [Suspect]
     Active Substance: RISPERIDONE
     Indication: SCHIZOPHRENIA
     Dosage: DOSE: 1 X 50 MG
     Route: 065
     Dates: start: 20160609, end: 20161104

REACTIONS (5)
  - Psychotic disorder [Unknown]
  - Overdose [Unknown]
  - Drug administration error [Unknown]
  - Drug ineffective [Recovering/Resolving]
  - Electrocardiogram abnormal [Recovered/Resolved]

NARRATIVE: CASE EVENT DATE: 201606
